FAERS Safety Report 10727314 (Version 1)
Quarter: 2015Q1

REPORT INFORMATION
  Report Type: Spontaneous
  Country: US (occurrence: US)
  Receive Date: 20150121
  Receipt Date: 20150121
  Transmission Date: 20150721
  Serious: No
  Sender: FDA-Public Use
  Company Number: US-009507513-1501USA005733

PATIENT
  Age: 40 Year
  Sex: Female

DRUGS (1)
  1. NEXPLANON [Suspect]
     Active Substance: ETONOGESTREL
     Indication: CONTRACEPTION
     Dosage: EVERY 3 YEARS
     Route: 059
     Dates: start: 20140707

REACTIONS (6)
  - Implant site pain [Unknown]
  - Adnexa uteri pain [Unknown]
  - Menorrhagia [Unknown]
  - Headache [Unknown]
  - Pain in extremity [Unknown]
  - Depressed mood [Unknown]

NARRATIVE: CASE EVENT DATE: 201409
